FAERS Safety Report 23279736 (Version 4)
Quarter: 2025Q3

REPORT INFORMATION
  Report Type: Report from Study
  Country: US (occurrence: US)
  Receive Date: 20231210
  Receipt Date: 20250704
  Transmission Date: 20251020
  Serious: No
  Sender: SANOFI AVENTIS
  Company Number: US-SA-SAC20231205000121

PATIENT
  Age: 34 Year
  Sex: Male

DRUGS (3)
  1. ALTUVIIIO [Suspect]
     Active Substance: EFANESOCTOCOG ALFA
     Indication: Factor VIII deficiency
     Dosage: 3515 U, QW OR AS NEEDED
     Route: 042
     Dates: start: 202308, end: 2023
  2. ALTUVIIIO [Suspect]
     Active Substance: EFANESOCTOCOG ALFA
     Route: 042
  3. ALTUVIIIO [Suspect]
     Active Substance: EFANESOCTOCOG ALFA
     Route: 042

REACTIONS (6)
  - Haemorrhage [Unknown]
  - COVID-19 [Recovering/Resolving]
  - Haemorrhage [Unknown]
  - Joint stiffness [Unknown]
  - Haemorrhoids [Unknown]
  - Post procedural constipation [Recovered/Resolved]

NARRATIVE: CASE EVENT DATE: 20231114
